FAERS Safety Report 10258616 (Version 1)
Quarter: 2014Q2

REPORT INFORMATION
  Report Type: Spontaneous
  Country: US (occurrence: US)
  Receive Date: 20140625
  Receipt Date: 20140625
  Transmission Date: 20141212
  Serious: Yes (Other)
  Sender: FDA-Public Use
  Company Number: US-BRISTOL-MYERS SQUIBB COMPANY-21039680

PATIENT
  Age: 57 Year
  Sex: Female

DRUGS (4)
  1. ABILIFY [Suspect]
     Indication: AFFECTIVE DISORDER
     Dates: start: 201401
  2. ABILIFY [Suspect]
     Indication: DEPRESSION
     Dates: start: 201401
  3. ABILIFY [Suspect]
     Indication: ANXIETY
     Dates: start: 201401
  4. XANAX [Concomitant]

REACTIONS (2)
  - Macular degeneration [Unknown]
  - Off label use [Unknown]
